FAERS Safety Report 15048131 (Version 6)
Quarter: 2019Q2

REPORT INFORMATION
  Report Type: Spontaneous
  Country: JP (occurrence: JP)
  Receive Date: 20180622
  Receipt Date: 20190516
  Transmission Date: 20190711
  Serious: Yes (Death, Hospitalization, Other)
  Sender: FDA-Public Use
  Company Number: JP-TAKEDA-2018TJP016345

PATIENT
  Age: 81 Year
  Sex: Female
  Weight: 42.5 kg

DRUGS (4)
  1. REVLIMID [Suspect]
     Active Substance: LENALIDOMIDE
     Indication: PLASMA CELL MYELOMA
     Dosage: UNK
     Route: 048
     Dates: start: 20180517
  2. NINLARO [Suspect]
     Active Substance: IXAZOMIB CITRATE
     Dosage: 3 MILLIGRAM, QD
     Route: 048
     Dates: start: 20180616, end: 20180618
  3. NINLARO [Suspect]
     Active Substance: IXAZOMIB CITRATE
     Indication: PLASMA CELL MYELOMA
     Dosage: 3 MILLIGRAM
     Route: 048
     Dates: start: 20180517
  4. DEXAMETHASONE. [Concomitant]
     Active Substance: DEXAMETHASONE
     Indication: PLASMA CELL MYELOMA
     Dosage: UNK
     Route: 048
     Dates: start: 20180517

REACTIONS (16)
  - Bacteraemia [Fatal]
  - Acute kidney injury [Unknown]
  - Diarrhoea [Recovering/Resolving]
  - Multiple organ dysfunction syndrome [Fatal]
  - Respiratory failure [Unknown]
  - Thrombotic thrombocytopenic purpura [Unknown]
  - Inappropriate schedule of product administration [Unknown]
  - Plasma cell myeloma [Fatal]
  - Platelet count decreased [Fatal]
  - White blood cell count abnormal [Unknown]
  - Cardiac failure [Unknown]
  - Accidental overdose [Unknown]
  - Septic shock [Fatal]
  - Enterocolitis [Unknown]
  - Pneumonia [Unknown]
  - Platelet count decreased [Recovered/Resolved]

NARRATIVE: CASE EVENT DATE: 201806
